FAERS Safety Report 14847294 (Version 1)
Quarter: 2018Q2

REPORT INFORMATION
  Report Type: Spontaneous
  Country: US (occurrence: US)
  Receive Date: 20180418
  Receipt Date: 20180418
  Transmission Date: 20180711
  Serious: No
  Sender: FDA-Public Use
  Company Number: None

PATIENT
  Age: 73 Year
  Sex: Female

DRUGS (1)
  1. REPATHA [Suspect]
     Active Substance: EVOLOCUMAB

REACTIONS (9)
  - Nausea [None]
  - Fall [None]
  - Syncope [None]
  - Back pain [None]
  - Back injury [None]
  - Dizziness [None]
  - Headache [None]
  - Myalgia [None]
  - Loss of consciousness [None]

NARRATIVE: CASE EVENT DATE: 20171203
